FAERS Safety Report 8612235-2 (Version None)
Quarter: 2012Q3

REPORT INFORMATION
  Report Type: 
  Country: None (occurrence: None)
  Receive Date: 20120822
  Receipt Date: 20120816
  Transmission Date: 20120928
  Serious: Yes (Other)
  Sender: FDA-Public Use
  Company Number: ZA-BAYER-2012-086371

PATIENT
  Sex: Female

DRUGS (1)
  1. CANESTEN DUOPAK 1 VT + 10 G TOPICAL CREAM [Suspect]
     Indication: VULVOVAGINAL CANDIDIASIS
     Dosage: UNK

REACTIONS (1)
  - VAGINAL HAEMORRHAGE [None]
